FAERS Safety Report 19111283 (Version 1)
Quarter: 2021Q2

REPORT INFORMATION
  Report Type: Spontaneous
  Country: US (occurrence: US)
  Receive Date: 20210408
  Receipt Date: 20210408
  Transmission Date: 20210717
  Serious: Yes (Hospitalization)
  Sender: FDA-Public Use
  Company Number: None

PATIENT
  Sex: Female

DRUGS (4)
  1. LOSARTAN POT [Concomitant]
     Active Substance: LOSARTAN POTASSIUM
  2. BREZTRI AERO AER SPHERE [Concomitant]
  3. PILOCARPINE. [Concomitant]
     Active Substance: PILOCARPINE
  4. TAFINLAR [Suspect]
     Active Substance: DABRAFENIB MESYLATE
     Indication: NEOPLASM MALIGNANT
     Dosage: ?          OTHER FREQUENCY:EVERY 12 HOURS;?
     Route: 048
     Dates: start: 20190820

REACTIONS (2)
  - Therapy interrupted [None]
  - Pneumothorax [None]
